FAERS Safety Report 10073065 (Version 1)
Quarter: 2014Q2

REPORT INFORMATION
  Report Type: Report from Study
  Country: MX (occurrence: MX)
  Receive Date: 20140411
  Receipt Date: 20140411
  Transmission Date: 20141212
  Serious: Yes (Other)
  Sender: FDA-Public Use
  Company Number: PHHY2014MX044475

PATIENT
  Age: 83 Year
  Sex: Female

DRUGS (1)
  1. EXFORGE [Suspect]
     Dosage: 160/10 MG, UNK

REACTIONS (2)
  - Fall [Unknown]
  - Mouth injury [Unknown]
